FAERS Safety Report 20994994 (Version 1)
Quarter: 2022Q2

REPORT INFORMATION
  Report Type: Spontaneous
  Country: DE (occurrence: DE)
  Receive Date: 20220622
  Receipt Date: 20220622
  Transmission Date: 20220721
  Serious: Yes (Disabling, Other)
  Sender: FDA-Public Use
  Company Number: None

PATIENT
  Sex: Female

DRUGS (2)
  1. CYTOTEC [Suspect]
     Active Substance: MISOPROSTOL
     Dosage: 0.5 DF, SINGLE
     Route: 064
     Dates: start: 20120814, end: 20120814
  2. CYTOTEC [Suspect]
     Active Substance: MISOPROSTOL
     Dosage: 0.5 DF, SINGLE
     Route: 064
     Dates: start: 20120815, end: 20120815

REACTIONS (4)
  - Interstitial lung disease [Not Recovered/Not Resolved]
  - Failure to thrive [Not Recovered/Not Resolved]
  - Foetal exposure during pregnancy [Unknown]
  - Haematoma [Unknown]

NARRATIVE: CASE EVENT DATE: 20120815
